FAERS Safety Report 5242628-5 (Version None)
Quarter: 2007Q1

REPORT INFORMATION
  Report Type: 
  Country: None (occurrence: None)
  Receive Date: 20070221
  Receipt Date: 20070216
  Transmission Date: 20070707
  Serious: Yes (Hospitalization)
  Sender: FDA-Public Use
  Company Number: HQWYE020116FEB07

PATIENT
  Age: 49 Year
  Sex: Male

DRUGS (6)
  1. CORDARONE [Suspect]
     Indication: ARRHYTHMIA
     Route: 048
     Dates: start: 20070110
  2. CORDARONE [Suspect]
     Indication: CARDIAC DISORDER
  3. TAZOCILLINE [Suspect]
     Indication: ESCHERICHIA INFECTION
     Route: 042
     Dates: start: 20070116
  4. SOMATOSTATIN [Suspect]
     Indication: OESOPHAGEAL VARICES HAEMORRHAGE
     Route: 042
     Dates: start: 20070115
  5. TAVANIC [Suspect]
     Indication: ESCHERICHIA INFECTION
     Route: 042
     Dates: start: 20070108, end: 20070116
  6. ROCEPHIN [Suspect]
     Indication: ESCHERICHIA INFECTION
     Route: 042
     Dates: start: 20070108

REACTIONS (2)
  - GRAND MAL CONVULSION [None]
  - PARTIAL SEIZURES [None]
